FAERS Safety Report 4471100-5 (Version None)
Quarter: 2004Q4

REPORT INFORMATION
  Report Type: 
  Country: None (occurrence: None)
  Receive Date: 20041011
  Receipt Date: 20040930
  Transmission Date: 20050328
  Serious: Yes (Hospitalization)
  Sender: FDA-Public Use
  Company Number: PHBS2004IL13051

PATIENT
  Age: 65 Year
  Sex: Male

DRUGS (4)
  1. PAMIDRONATE DISODIUM [Suspect]
     Indication: MULTIPLE MYELOMA
     Dosage: 90 MG, QMO
     Route: 042
  2. ZOLEDRONATE [Suspect]
     Indication: MULTIPLE MYELOMA
     Dosage: 4 MG, QMO
     Route: 042
  3. MELPHALAN [Concomitant]
  4. PREDNISONE [Concomitant]

REACTIONS (7)
  - BONE DEBRIDEMENT [None]
  - HYPERBARIC OXYGEN THERAPY [None]
  - OSTEOMYELITIS [None]
  - OSTEONECROSIS [None]
  - PAIN IN JAW [None]
  - PURULENT DISCHARGE [None]
  - TRISMUS [None]
